FAERS Safety Report 7488821-2 (Version None)
Quarter: 2011Q2

REPORT INFORMATION
  Report Type: 
  Country: None (occurrence: None)
  Receive Date: 20110518
  Receipt Date: 20110510
  Transmission Date: 20111010
  Serious: Yes (Life-Threatening, Hospitalization)
  Sender: FDA-Public Use
  Company Number: DE-PFIZER INC-2011046017

PATIENT
  Age: 63 Year
  Sex: Male

DRUGS (7)
  1. AMIODARONE HYDROCHLORIDE [Suspect]
     Indication: VENTRICULAR TACHYCARDIA
     Dosage: 800 MG, ONCE
     Route: 048
     Dates: start: 20110220, end: 20110220
  2. BISOPROLOL [Concomitant]
     Dosage: UNK
     Dates: start: 20110215, end: 20110218
  3. EMBOLEX [Concomitant]
  4. RAMIPRIL [Concomitant]
     Dosage: UNK
     Dates: start: 20110215
  5. AMIODARONE HYDROCHLORIDE [Suspect]
     Indication: CONGESTIVE CARDIOMYOPATHY
     Dosage: UNK
     Route: 048
     Dates: start: 20110218, end: 20110218
  6. TRIFAMOX IBL [Concomitant]
     Dosage: UNK
     Dates: start: 20110215, end: 20110220
  7. ACETYLCYSTEINE [Concomitant]
     Indication: CHRONIC OBSTRUCTIVE PULMONARY DISEASE

REACTIONS (3)
  - HEPATIC FAILURE [None]
  - NEPHROPATHY [None]
  - BLOOD LACTATE DEHYDROGENASE INCREASED [None]
